FAERS Safety Report 22605521 (Version 2)
Quarter: 2023Q2

REPORT INFORMATION
  Report Type: Spontaneous
  Country: DE (occurrence: DE)
  Receive Date: 20230615
  Receipt Date: 20230626
  Transmission Date: 20230722
  Serious: Yes (Hospitalization)
  Sender: FDA-Public Use
  Company Number: DE-TEVA-2023-DE-2896707

PATIENT
  Age: 17 Year
  Sex: Male
  Weight: 98 kg

DRUGS (1)
  1. IBUPROFEN [Suspect]
     Active Substance: IBUPROFEN
     Indication: Analgesic therapy
     Dosage: 41 MG/KG DAILY; (4GM; 41 MG/KG/D) FOR PAIN OVER FOUR DAYS
     Route: 065

REACTIONS (3)
  - Nephropathy toxic [Recovered/Resolved]
  - Overdose [Unknown]
  - Intentional product misuse [Unknown]
